FAERS Safety Report 5384683-8 (Version None)
Quarter: 2007Q3

REPORT INFORMATION
  Report Type: 
  Country: None (occurrence: None)
  Receive Date: 20070711
  Receipt Date: 20070704
  Transmission Date: 20080115
  Serious: Yes (Life-Threatening, Hospitalization)
  Sender: FDA-Public Use
  Company Number: NL-ABBOTT-07P-114-0373650-00

PATIENT
  Sex: Female
  Weight: 64 kg

DRUGS (1)
  1. KLACID SR TABLETS MGA [Suspect]
     Indication: ROSACEA
     Route: 048
     Dates: start: 20070601, end: 20070605

REACTIONS (1)
  - VENTRICULAR FIBRILLATION [None]
